FAERS Safety Report 5321233-6 (Version None)
Quarter: 2007Q2

REPORT INFORMATION
  Report Type: 
  Country: None (occurrence: None)
  Receive Date: 20070214
  Receipt Date: 20061114
  Transmission Date: 20071010
  Serious: Yes (Hospitalization)
  Sender: FDA-Public Use
  Company Number: 149859USA

PATIENT
  Sex: Male

DRUGS (1)
  1. PROPOFOL [Suspect]
     Dates: start: 20061113, end: 20061114

REACTIONS (1)
  - INFUSION SITE ERYTHEMA [None]
